FAERS Safety Report 5267702-9 (Version None)
Quarter: 2007Q1

REPORT INFORMATION
  Report Type: 
  Country: None (occurrence: None)
  Receive Date: 20070316
  Receipt Date: 20070309
  Transmission Date: 20070707
  Serious: Yes (Hospitalization, Disabling, Other)
  Sender: FDA-Public Use
  Company Number: US-PFIZER INC-2007000303

PATIENT
  Sex: Female

DRUGS (2)
  1. DETROL LA [Suspect]
  2. MORPHINE [Concomitant]

REACTIONS (4)
  - ABASIA [None]
  - FALL [None]
  - GAIT DISTURBANCE [None]
  - UPPER LIMB FRACTURE [None]
